FAERS Safety Report 6974651-4 (Version None)
Quarter: 2010Q3

REPORT INFORMATION
  Report Type: 
  Country: None (occurrence: None)
  Receive Date: 20100909
  Receipt Date: 20081124
  Transmission Date: 20110219
  Serious: No
  Sender: FDA-Public Use
  Company Number: US-WYE-H06951708

PATIENT
  Sex: Female
  Weight: 56.75 kg

DRUGS (2)
  1. LYBREL [Suspect]
     Indication: ENDOMETRIOSIS
     Route: 048
  2. INFLUENZA VIRUS VACCINE POLYVALENT [Suspect]
     Indication: IMMUNISATION
     Dosage: UNKNOWN
     Route: 065
     Dates: start: 20081031, end: 20081031

REACTIONS (5)
  - ABDOMINAL DISTENSION [None]
  - ABDOMINAL PAIN UPPER [None]
  - CONDITION AGGRAVATED [None]
  - FLATULENCE [None]
  - FOOD ALLERGY [None]
